FAERS Safety Report 5651767-6 (Version None)
Quarter: 2008Q1

REPORT INFORMATION
  Report Type: 
  Country: None (occurrence: None)
  Receive Date: 20080305
  Receipt Date: 20080227
  Transmission Date: 20080703
  Serious: Yes (Life-Threatening, Hospitalization, Disabling)
  Sender: FDA-Public Use
  Company Number: ES-PFIZER INC-2008018320

PATIENT
  Age: 40 Year
  Sex: Female

DRUGS (1)
  1. PREPIDIL [Suspect]
     Indication: INDUCED LABOUR
     Dosage: DAILY DOSE:.5MG-FREQ:ONCE
     Dates: start: 20020629, end: 20020629

REACTIONS (1)
  - DISSEMINATED INTRAVASCULAR COAGULATION [None]
